FAERS Safety Report 16021629 (Version 1)
Quarter: 2019Q1

REPORT INFORMATION
  Report Type: Spontaneous
  Country: US (occurrence: US)
  Receive Date: 20190301
  Receipt Date: 20190301
  Transmission Date: 20190418
  Serious: No
  Sender: FDA-Public Use
  Company Number: US-ASTRAZENECA-2019SE20802

PATIENT
  Sex: Female
  Weight: 68 kg

DRUGS (1)
  1. CRESTOR [Suspect]
     Active Substance: ROSUVASTATIN CALCIUM
     Indication: BLOOD CHOLESTEROL INCREASED
     Route: 048
     Dates: start: 2009

REACTIONS (12)
  - Night sweats [Unknown]
  - Therapy cessation [Unknown]
  - Blood cholesterol increased [Unknown]
  - Dysstasia [Unknown]
  - Product use in unapproved indication [Unknown]
  - Tendonitis [Unknown]
  - Condition aggravated [Not Recovered/Not Resolved]
  - White blood cell count increased [Unknown]
  - Adverse drug reaction [Unknown]
  - Urinary tract infection [Unknown]
  - Blood glucose decreased [Unknown]
  - Off label use [Unknown]
